FAERS Safety Report 4332748-1 (Version None)
Quarter: 2004Q2

REPORT INFORMATION
  Report Type: 
  Country: None (occurrence: None)
  Receive Date: 20040401
  Receipt Date: 20040316
  Transmission Date: 20050107
  Serious: Yes (Life-Threatening, Hospitalization)
  Sender: FDA-Public Use
  Company Number: 205333

PATIENT
  Age: 57 Year
  Sex: Female
  Weight: 62 kg

DRUGS (12)
  1. RITUXIMAB OR PLACEBO(RITUXIMAB) CONC FOR SOLUTION FOR INFUSION [Suspect]
     Indication: RHEUMATOID ARTHRITIS
     Dosage: 1000 MG, X2, INTRAVENOUS
     Route: 042
     Dates: start: 20040129, end: 20040212
  2. METHYLPREDNISOLONE [Suspect]
     Indication: RHEUMATOID ARTHRITIS
     Dosage: 100 MG, X2, INTRAVENOUS
     Route: 042
     Dates: start: 20040129, end: 20040212
  3. PREDNISONE [Suspect]
     Indication: RHEUMATOID ARTHRITIS
     Dosage: 30 + 60 MG, ORAL
     Route: 048
     Dates: start: 20040130, end: 20040211
  4. METHOTREXATE [Concomitant]
  5. TRAMADOL HCL [Concomitant]
  6. VOLTAREN [Concomitant]
  7. PREDNISONE TAB [Concomitant]
  8. FOLIC ACID [Concomitant]
  9. POTASSIUM CHLORIDE [Concomitant]
  10. IRBESARTAN (IRBESARTAN) [Concomitant]
  11. ENDOTELON (PROCYANIDOLIC OLIGOMERS) [Concomitant]
  12. LODOZ (BISOPROLOL FUMARATE, HYDROCHLOROTHIAZIDE) [Concomitant]

REACTIONS (1)
  - MYOCARDIAL INFARCTION [None]
